FAERS Safety Report 17364443 (Version 1)
Quarter: 2020Q3

REPORT INFORMATION
  Report Type: Report from Study
  Country: GB (occurrence: GB)
  Receive Date: 20200204
  Receipt Date: 20200204
  Transmission Date: 20201105
  Serious: Yes (Hospitalization)
  Sender: FDA-Public Use
  Company Number: GB-ROCHE-2386723

PATIENT
  Age: 59 Year
  Sex: Female

DRUGS (12)
  1. CYCLOPHOSPHAMIDE. [Suspect]
     Active Substance: CYCLOPHOSPHAMIDE
     Indication: TRIPLE NEGATIVE BREAST CANCER
     Dosage: MOST RECENT DOSE OF CYCLOPHOSPHAMIDE: 02/AUG/2019
     Route: 065
     Dates: start: 20190712
  2. DOXORUBICIN [Suspect]
     Active Substance: DOXORUBICIN
     Indication: TRIPLE NEGATIVE BREAST CANCER
     Dosage: MOST RECENT DOSE OF DOXORUBICIN: 02/AUG/2019
     Route: 065
     Dates: start: 20190712
  3. DOMPERIDONE [Concomitant]
     Active Substance: DOMPERIDONE
     Route: 048
  4. IPATASERTIB. [Suspect]
     Active Substance: IPATASERTIB
     Indication: TRIPLE NEGATIVE BREAST CANCER
     Dosage: MOST RECENT DOSE OF IPATASERTIB: 04/JUL/2019
     Route: 048
     Dates: start: 20190329
  5. LANSOPRAZOLE. [Concomitant]
     Active Substance: LANSOPRAZOLE
     Route: 048
  6. PACLITAXEL. [Suspect]
     Active Substance: PACLITAXEL
     Indication: TRIPLE NEGATIVE BREAST CANCER
     Dosage: DATE OF MOST RECENT DOSE OF PACLITAXEL:05/JUL/2019
     Route: 042
     Dates: start: 20190418
  7. ACYCLOVIR [ACICLOVIR] [Concomitant]
     Active Substance: ACYCLOVIR
     Route: 042
  8. AMOXICLAV [Concomitant]
     Active Substance: AMOXICILLIN\CLAVULANATE POTASSIUM
     Indication: INFECTION
     Route: 048
     Dates: start: 20190719, end: 20190723
  9. DOMPERIDONE [Concomitant]
     Active Substance: DOMPERIDONE
     Route: 065
  10. ATEZOLIZUMAB. [Suspect]
     Active Substance: ATEZOLIZUMAB
     Indication: TRIPLE NEGATIVE BREAST CANCER
     Dosage: MOST RECENT DOSE OF ATEZOLIZUMAB: 02/AUG/2019
     Route: 042
     Dates: start: 20190329
  11. METOCLOPRAMIDE. [Concomitant]
     Active Substance: METOCLOPRAMIDE
     Route: 065
  12. ONDASETRON [ONDANSETRON] [Concomitant]
     Route: 048

REACTIONS (3)
  - Adrenal insufficiency [Recovering/Resolving]
  - Herpes zoster [Recovered/Resolved]
  - Adrenocorticotropic hormone deficiency [Recovering/Resolving]

NARRATIVE: CASE EVENT DATE: 20190815
